FAERS Safety Report 7880062-X (Version None)
Quarter: 2011Q4

REPORT INFORMATION
  Report Type: 
  Country: None (occurrence: None)
  Receive Date: 20111101
  Receipt Date: 20111020
  Transmission Date: 20120403
  Serious: Yes (Death, Life-Threatening, Hospitalization)
  Sender: FDA-Public Use
  Company Number: MX-ROCHE-771317

PATIENT
  Sex: Male
  Weight: 65.5 kg

DRUGS (14)
  1. ACTEMRA [Suspect]
     Dosage: FORM REPORTED AS VIAL, LAST DOSE PRIOR TO SAE: 25 JUNE 2007.
     Route: 042
  2. SENNOSIDE A+B [Concomitant]
     Dosage: FREQUENCY: AS NECESSARY
     Dates: start: 20060815, end: 20110303
  3. ACTEMRA [Suspect]
     Route: 042
  4. ACTEMRA [Suspect]
     Route: 042
  5. CHLOROQUINE DIPHOSPHATE [Concomitant]
     Route: 048
     Dates: start: 20030101, end: 20110503
  6. METHOTREXATE [Suspect]
     Indication: RHEUMATOID ARTHRITIS
     Route: 048
     Dates: start: 20030101, end: 20110328
  7. ACETAMINOPHEN [Concomitant]
     Route: 048
     Dates: start: 20050101, end: 20110503
  8. ACTEMRA [Suspect]
     Route: 042
  9. ACTEMRA [Suspect]
     Dosage: LAST DOSE PRIOR TO SAE: 28 FEB 2011
     Route: 042
  10. FOLIC ACID [Concomitant]
     Dates: start: 20050101, end: 20110503
  11. SINERGIX [Concomitant]
     Dosage: 25/10 MG
     Dates: start: 20050101, end: 20110503
  12. ACTEMRA [Suspect]
     Route: 042
  13. PREDNISONE [Concomitant]
     Route: 048
     Dates: start: 20050101, end: 20110503
  14. ACTEMRA [Suspect]
     Indication: RHEUMATOID ARTHRITIS
     Dosage: DOSE FORM: VIAL
     Route: 042

REACTIONS (3)
  - METASTATIC NEOPLASM [None]
  - THROMBOCYTOPENIA [None]
  - CARDIAC ARREST [None]
